FAERS Safety Report 20085250 (Version 3)
Quarter: 2022Q1

REPORT INFORMATION
  Report Type: Report from Study
  Country: US (occurrence: US)
  Receive Date: 20211118
  Receipt Date: 20220214
  Transmission Date: 20220423
  Serious: Yes (Death, Other)
  Sender: FDA-Public Use
  Company Number: US-GLAXOSMITHKLINE-US2021AMR194179

PATIENT
  Age: 86 Year
  Sex: Female

DRUGS (1)
  1. BELANTAMAB MAFODOTIN [Suspect]
     Active Substance: BELANTAMAB MAFODOTIN
     Indication: Plasma cell myeloma
     Dosage: 182 MG (2) 100 MG VIALS VIA INFUSION
     Dates: start: 20210916

REACTIONS (6)
  - Death [Fatal]
  - Cataract [Unknown]
  - Keratopathy [Unknown]
  - Visual acuity reduced [Recovering/Resolving]
  - Dry eye [Unknown]
  - Hospice care [Unknown]

NARRATIVE: CASE EVENT DATE: 20211001
